FAERS Safety Report 9060321 (Version 14)
Quarter: 2013Q2

REPORT INFORMATION
  Report Type: Report from Study
  Country: CA (occurrence: CA)
  Receive Date: 20130131
  Receipt Date: 20130624
  Transmission Date: 20140414
  Serious: Yes (Hospitalization, Other)
  Sender: FDA-Public Use
  Company Number: CA-ROCHE-1176952

PATIENT
  Age: 56 Year
  Sex: Male
  Weight: 82 kg

DRUGS (7)
  1. AVASTIN [Suspect]
     Indication: GLIOBLASTOMA
     Route: 042
     Dates: start: 20121221, end: 20130531
  2. DECADRON [Concomitant]
  3. TYLENOL [Concomitant]
     Indication: PREMEDICATION
     Route: 048
     Dates: start: 20121221, end: 20130531
  4. BENADRYL [Concomitant]
     Indication: PREMEDICATION
     Route: 048
     Dates: start: 20130113
  5. BENADRYL [Concomitant]
     Route: 048
     Dates: start: 20121221, end: 20130531
  6. SOLU-MEDROL [Concomitant]
     Indication: PREMEDICATION
     Route: 042
     Dates: start: 20130113
  7. SOLU-MEDROL [Concomitant]
     Route: 042
     Dates: start: 20121221, end: 20130531

REACTIONS (21)
  - Central nervous system infection [Not Recovered/Not Resolved]
  - Pulmonary embolism [Unknown]
  - Thrombosis [Unknown]
  - Osteomyelitis [Not Recovered/Not Resolved]
  - Phlebitis [Unknown]
  - Disease progression [Unknown]
  - Erythema [Unknown]
  - Pruritus [Unknown]
  - Cellulitis [Not Recovered/Not Resolved]
  - Incision site infection [Not Recovered/Not Resolved]
  - Epistaxis [Recovered/Resolved]
  - Headache [Not Recovered/Not Resolved]
  - Protein urine [Unknown]
  - Weight fluctuation [Not Recovered/Not Resolved]
  - Sleep disorder [Not Recovered/Not Resolved]
  - Chills [Not Recovered/Not Resolved]
  - Postoperative wound infection [Not Recovered/Not Resolved]
  - Injection site paraesthesia [Recovered/Resolved]
  - Feeling hot [Recovered/Resolved]
  - Joint swelling [Unknown]
  - Local swelling [Unknown]
